FAERS Safety Report 7154136-5 (Version None)
Quarter: 2010Q4

REPORT INFORMATION
  Report Type: 
  Country: None (occurrence: None)
  Receive Date: 20101124
  Receipt Date: 20101112
  Transmission Date: 20110411
  Serious: Yes (Hospitalization, Other)
  Sender: FDA-Public Use
  Company Number: 021752

PATIENT
  Sex: Male
  Weight: 60.3 kg

DRUGS (11)
  1. KEPPRA [Suspect]
     Indication: FRONTAL LOBE EPILEPSY
     Dosage: (1000 MG ORAL) ; (2000 MG ORAL) ; (3000 MG ORAL)
     Route: 048
     Dates: start: 20060907
  2. KEPPRA [Suspect]
     Indication: FRONTAL LOBE EPILEPSY
     Dosage: (1000 MG ORAL) ; (2000 MG ORAL) ; (3000 MG ORAL)
     Route: 048
     Dates: start: 20061005
  3. KEPPRA [Suspect]
     Indication: FRONTAL LOBE EPILEPSY
     Dosage: (1000 MG ORAL) ; (2000 MG ORAL) ; (3000 MG ORAL)
     Route: 048
     Dates: start: 20061102
  4. PHENOBAL /00023201/ (PHENOBAL) [Suspect]
     Indication: FRONTAL LOBE EPILEPSY
     Dosage: (120 MG ORAL)
     Route: 048
     Dates: start: 20041026
  5. CARBAMAZEPINE [Suspect]
     Indication: FRONTAL LOBE EPILEPSY
     Dosage: (900 MG ORAL)
     Route: 048
     Dates: start: 20051101
  6. PHENYTOIN [Suspect]
     Indication: FRONTAL LOBE EPILEPSY
     Dosage: (75 MG ORAL)
     Route: 048
     Dates: start: 20050426
  7. PHENYTOIN [Suspect]
     Indication: FRONTAL LOBE EPILEPSY
     Dosage: (200 MG ORAL)
     Route: 048
     Dates: start: 20041007
  8. LAMISIL /00992601/ [Concomitant]
  9. NIZORAL [Concomitant]
  10. EBASTINE [Concomitant]
  11. DIFLAL [Concomitant]

REACTIONS (8)
  - ALANINE AMINOTRANSFERASE INCREASED [None]
  - BLOOD ALKALINE PHOSPHATASE INCREASED [None]
  - BLOOD TRIGLYCERIDES INCREASED [None]
  - ECZEMA [None]
  - GAMMA-GLUTAMYLTRANSFERASE INCREASED [None]
  - SMALL INTESTINE CARCINOMA [None]
  - SYNOVIAL CYST [None]
  - TINEA INFECTION [None]
